FAERS Safety Report 20147605 (Version 2)
Quarter: 2021Q4

REPORT INFORMATION
  Report Type: Spontaneous
  Country: US (occurrence: US)
  Receive Date: 20211203
  Receipt Date: 20211209
  Transmission Date: 20220303
  Serious: No
  Sender: FDA-Public Use
  Company Number: US-SA-SAC20211129000093

PATIENT
  Age: 54 Year
  Sex: Female
  Weight: 83.492 kg

DRUGS (8)
  1. DUPIXENT [Suspect]
     Active Substance: DUPILUMAB
     Indication: Illness
     Dosage: 300 MG, QOW
     Route: 058
  2. MODERNA COVID-19 VACCINE [Concomitant]
     Active Substance: ELASOMERAN
  3. AMOXICILLIN [Concomitant]
     Active Substance: AMOXICILLIN
  4. IBUPROFEN [Concomitant]
     Active Substance: IBUPROFEN
  5. CHLORHEXIDINE [Concomitant]
     Active Substance: CHLORHEXIDINE
  6. ACETAMINOPHEN [Concomitant]
     Active Substance: ACETAMINOPHEN
  7. CODEINE [Concomitant]
     Active Substance: CODEINE
  8. HYDROCORTISONE\NEOMYCIN\POLYMYXIN B [Concomitant]
     Active Substance: HYDROCORTISONE\NEOMYCIN\POLYMYXIN B

REACTIONS (1)
  - Injection site pain [Unknown]
